FAERS Safety Report 16088456 (Version 2)
Quarter: 2019Q2

REPORT INFORMATION
  Report Type: Spontaneous
  Country: US (occurrence: US)
  Receive Date: 20190319
  Receipt Date: 20190404
  Transmission Date: 20190711
  Serious: No
  Sender: FDA-Public Use
  Company Number: US-PFIZER INC-2019102700

PATIENT
  Age: 49 Year
  Sex: Female
  Weight: 64.86 kg

DRUGS (1)
  1. CHANTIX [Suspect]
     Active Substance: VARENICLINE TARTRATE
     Indication: SMOKING CESSATION THERAPY
     Dosage: UNK UNK, 2X/DAY (BLUE TABLET TWICE A DAY BY MOUTH)
     Route: 048
     Dates: start: 201901, end: 201902

REACTIONS (6)
  - Arthralgia [Unknown]
  - Depression [Not Recovered/Not Resolved]
  - Product dose omission [Unknown]
  - Abnormal dreams [Unknown]
  - Belligerence [Unknown]
  - Intentional product misuse [Unknown]

NARRATIVE: CASE EVENT DATE: 2019
